FAERS Safety Report 9935198 (Version 1)
Quarter: 2014Q1

REPORT INFORMATION
  Report Type: Spontaneous
  Country: GB (occurrence: GB)
  Receive Date: 20140228
  Receipt Date: 20140228
  Transmission Date: 20141002
  Serious: Yes (Other)
  Sender: FDA-Public Use
  Company Number: GB-UCBSA-113227

PATIENT
  Age: 49 Year
  Sex: Male

DRUGS (2)
  1. CIMZIA [Suspect]
     Indication: PSORIATIC ARTHROPATHY
     Route: 058
     Dates: start: 20140114, end: 20140214
  2. NONE [Concomitant]

REACTIONS (1)
  - Rash [Unknown]
